FAERS Safety Report 16334207 (Version 2)
Quarter: 2024Q4

REPORT INFORMATION
  Report Type: Spontaneous
  Country: US (occurrence: US)
  Receive Date: 20190520
  Receipt Date: 20241031
  Transmission Date: 20250115
  Serious: Yes (Hospitalization, Other)
  Sender: PFIZER
  Company Number: US-PFIZER INC-2019211095

PATIENT
  Sex: Female

DRUGS (3)
  1. SOLU-CORTEF [Suspect]
     Active Substance: HYDROCORTISONE SODIUM SUCCINATE
     Indication: Adrenal disorder
     Dosage: 100 MG, DAILY
  2. SOLU-CORTEF [Suspect]
     Active Substance: HYDROCORTISONE SODIUM SUCCINATE
     Indication: Adrenal insufficiency
     Dosage: 50 MG
     Route: 042
  3. SOLU-CORTEF [Suspect]
     Active Substance: HYDROCORTISONE SODIUM SUCCINATE
     Dosage: 100 MG

REACTIONS (6)
  - Drug ineffective [Unknown]
  - Blood pressure abnormal [Unknown]
  - Near death experience [Unknown]
  - Cardiovascular insufficiency [Unknown]
  - Vision blurred [Unknown]
  - Tremor [Unknown]
